FAERS Safety Report 17591762 (Version 1)
Quarter: 2020Q1

REPORT INFORMATION
  Report Type: Spontaneous
  Country: JP (occurrence: JP)
  Receive Date: 20200327
  Receipt Date: 20200327
  Transmission Date: 20200409
  Serious: Yes (Death)
  Sender: FDA-Public Use
  Company Number: JP-ASTRAZENECA-2020SE42644

PATIENT
  Age: 82 Year
  Sex: Male
  Weight: 50 kg

DRUGS (13)
  1. TAKECAB [Suspect]
     Active Substance: VONOPRAZAN FUMARATE
     Indication: PROPHYLAXIS AGAINST GASTROINTESTINAL ULCER
     Route: 048
     Dates: start: 20200206, end: 20200210
  2. CORALAN [Suspect]
     Active Substance: IVABRADINE HYDROCHLORIDE
     Indication: ACUTE CORONARY SYNDROME
     Route: 048
     Dates: start: 20200207, end: 20200221
  3. BISONO [Concomitant]
     Active Substance: BISOPROLOL
  4. LUNESTA [Concomitant]
     Active Substance: ESZOPICLONE
  5. NICORANDIL [Concomitant]
     Active Substance: NICORANDIL
  6. XARELTO [Concomitant]
     Active Substance: RIVAROXABAN
     Dates: start: 20200207
  7. SULBACILLIN [Concomitant]
     Active Substance: AMPICILLIN SODIUM\SULBACTAM SODIUM
  8. BAYASPIRIN [Concomitant]
     Active Substance: ASPIRIN
  9. THYRADIN [Concomitant]
     Active Substance: LEVOTHYROXINE
  10. ROSUVASTATIN. [Suspect]
     Active Substance: ROSUVASTATIN
     Indication: DYSLIPIDAEMIA
     Route: 048
     Dates: start: 20200207, end: 20200212
  11. EFIENT [Concomitant]
     Active Substance: PRASUGREL HYDROCHLORIDE
     Dates: start: 20200206
  12. QUETIAPINE. [Concomitant]
     Active Substance: QUETIAPINE
  13. ENALAPRIL [Concomitant]
     Active Substance: ENALAPRIL

REACTIONS (2)
  - Lung disorder [Fatal]
  - Pulmonary alveolar haemorrhage [Fatal]
